FAERS Safety Report 24082059 (Version 1)
Quarter: 2024Q3

REPORT INFORMATION
  Report Type: Spontaneous
  Country: US (occurrence: US)
  Receive Date: 20240712
  Receipt Date: 20240712
  Transmission Date: 20241017
  Serious: No
  Sender: ROCHE
  Company Number: US-ROCHE-10000022681

PATIENT
  Sex: Female

DRUGS (21)
  1. XOLAIR [Suspect]
     Active Substance: OMALIZUMAB
     Indication: Asthma
     Route: 065
  2. XOLAIR [Suspect]
     Active Substance: OMALIZUMAB
  3. FLUTICASONE [Concomitant]
     Active Substance: FLUTICASONE
  4. CLARITHROMYCIN [Concomitant]
     Active Substance: CLARITHROMYCIN
  5. ETHAMBUTOL HYDROCHLORIDE [Concomitant]
     Active Substance: ETHAMBUTOL HYDROCHLORIDE
  6. RIFAMPIN [Concomitant]
     Active Substance: RIFAMPIN
  7. BUDESONIDE [Concomitant]
     Active Substance: BUDESONIDE
  8. CLINDAMYCIN [Concomitant]
     Active Substance: CLINDAMYCIN
  9. DIAZEPAM [Concomitant]
     Active Substance: DIAZEPAM
  10. DOXYCYCLINE [Concomitant]
     Active Substance: DOXYCYCLINE\DOXYCYCLINE HYCLATE
  11. VENTOLIN HFA [Concomitant]
     Active Substance: ALBUTEROL SULFATE
  12. TYLENOL [Concomitant]
     Active Substance: ACETAMINOPHEN
  13. TRAZODONE [Concomitant]
     Active Substance: TRAZODONE HYDROCHLORIDE
  14. SYMBICORT [Concomitant]
     Active Substance: BUDESONIDE\FORMOTEROL FUMARATE DIHYDRATE
  15. SIMVASTATIN [Concomitant]
     Active Substance: SIMVASTATIN
  16. PREDNISONE [Concomitant]
     Active Substance: PREDNISONE
  17. OMEPRAZOLE [Concomitant]
     Active Substance: OMEPRAZOLE
  18. NYSTATIN [Concomitant]
     Active Substance: NYSTATIN
  19. MELOXICAM [Concomitant]
     Active Substance: MELOXICAM
  20. LEVOFLOXACIN [Concomitant]
     Active Substance: LEVOFLOXACIN
  21. IPRATROPIUM [Concomitant]
     Active Substance: IPRATROPIUM

REACTIONS (3)
  - Dyspnoea [Not Recovered/Not Resolved]
  - Asthma [Not Recovered/Not Resolved]
  - Therapeutic product effect decreased [Not Recovered/Not Resolved]
